FAERS Safety Report 16907622 (Version 1)
Quarter: 2019Q4

REPORT INFORMATION
  Report Type: Spontaneous
  Country: US (occurrence: US)
  Receive Date: 20190819
  Receipt Date: 20190819
  Transmission Date: 20200122
  Serious: No
  Sender: FDA-Public Use
  Company Number: None

PATIENT
  Age: 63 Year
  Sex: Female

DRUGS (1)
  1. STELARA [Suspect]
     Active Substance: USTEKINUMAB
     Indication: ANKYLOSING SPONDYLITIS
     Dosage: ?          OTHER
     Route: 058
     Dates: start: 201907

REACTIONS (2)
  - Malaise [None]
  - Atypical pneumonia [None]

NARRATIVE: CASE EVENT DATE: 20190805
